FAERS Safety Report 25085247 (Version 2)
Quarter: 2025Q3

REPORT INFORMATION
  Report Type: Spontaneous
  Country: US (occurrence: US)
  Receive Date: 20250317
  Receipt Date: 20250803
  Transmission Date: 20251021
  Serious: Yes (Other)
  Sender: ALEXION PHARMACEUTICALS
  Company Number: US-AstraZeneca-CH-00828554A

PATIENT
  Age: 30 Year
  Sex: Female
  Weight: 90.718 kg

DRUGS (2)
  1. TEZSPIRE [Suspect]
     Active Substance: TEZEPELUMAB-EKKO
     Indication: Asthma
     Dates: start: 20240401
  2. ALBUTEROL [Concomitant]
     Active Substance: ALBUTEROL
     Route: 065

REACTIONS (3)
  - Therapeutic response shortened [Unknown]
  - Dyspnoea exertional [Unknown]
  - Decreased activity [Unknown]

NARRATIVE: CASE EVENT DATE: 20240401
